FAERS Safety Report 5493865-6 (Version None)
Quarter: 2007Q4

REPORT INFORMATION
  Report Type: 
  Country: None (occurrence: None)
  Receive Date: 20071019
  Receipt Date: 20071004
  Transmission Date: 20080405
  Serious: Yes (Other)
  Sender: FDA-Public Use
  Company Number: DSU-2007-00506

PATIENT
  Age: 57 Year
  Sex: Male
  Weight: 102.0593 kg

DRUGS (3)
  1. FLOXIN OTIC [Suspect]
     Indication: EAR TUBE INSERTION
     Dosage: 1 TOTAL , AURICULAR
     Route: 001
     Dates: start: 20061119, end: 20061119
  2. LIPITOR(ATORVASTATIN CALCIUM)( 20 MILLIGRAM) (ATORVASTATIN CALCIUM) [Concomitant]
  3. ASPIRIN (ACETYLSALICYLIC ACID) (81 MILLIARAM)(ACETYLSALICYLIC ACID) [Concomitant]

REACTIONS (7)
  - DEAFNESS NEUROSENSORY [None]
  - DRUG INTERACTION [None]
  - MIDDLE EAR DISORDER [None]
  - MIDDLE EAR EFFUSION [None]
  - SUDDEN HEARING LOSS [None]
  - TREATMENT FAILURE [None]
  - VERTIGO [None]
